FAERS Safety Report 22655759 (Version 1)
Quarter: 2023Q2

REPORT INFORMATION
  Report Type: Spontaneous
  Country: KR (occurrence: KR)
  Receive Date: 20230629
  Receipt Date: 20230629
  Transmission Date: 20230722
  Serious: Yes (Life-Threatening, Other)
  Sender: FDA-Public Use
  Company Number: KR-MYLANLABS-2023M1068248

PATIENT
  Sex: Female

DRUGS (3)
  1. CELEBREX [Suspect]
     Active Substance: CELECOXIB
     Indication: Osteoporosis
     Dosage: 100 MILLIGRAM, BID (100 MILLIGRAM 0.5 DAY)
     Route: 048
     Dates: start: 20220523, end: 20220523
  2. EPERISONE HYDROCHLORIDE [Suspect]
     Active Substance: EPERISONE HYDROCHLORIDE
     Indication: Osteoporosis
     Dosage: 50 MILLIGRAM, TID (50 MILLIGRAM 0.33 DAY)
     Route: 048
     Dates: start: 20220523, end: 20220523
  3. REBAMIPIDE [Suspect]
     Active Substance: REBAMIPIDE
     Indication: Osteoporosis
     Dosage: 150 MILLIGRAM, BID (150 MILLIGRAM, 0.5 DAY)
     Route: 048
     Dates: start: 20220523, end: 20220523

REACTIONS (6)
  - Anaphylactic reaction [Recovered/Resolved]
  - Pruritus [Recovered/Resolved]
  - Rash [Recovered/Resolved]
  - Angioedema [Recovered/Resolved]
  - Dyspnoea [Recovered/Resolved]
  - Off label use [Unknown]

NARRATIVE: CASE EVENT DATE: 20220523
